FAERS Safety Report 20884790 (Version 1)
Quarter: 2022Q2

REPORT INFORMATION
  Report Type: Spontaneous
  Country: US (occurrence: None)
  Receive Date: 20220527
  Receipt Date: 20220527
  Transmission Date: 20220720
  Serious: No
  Sender: FDA-Public Use
  Company Number: None

PATIENT
  Age: 49 Year
  Sex: Female

DRUGS (1)
  1. TEMOZOLOMIDE [Suspect]
     Active Substance: TEMOZOLOMIDE
     Indication: Plasma cell myeloma
     Dosage: 100MG FOUR  TIMES DAILY  BY MOUTH?
     Route: 048
     Dates: start: 20220509

REACTIONS (5)
  - Vomiting [None]
  - Weight decreased [None]
  - Illness [None]
  - Incorrect dose administered [None]
  - Prescribed overdose [None]

NARRATIVE: CASE EVENT DATE: 20220509
